FAERS Safety Report 10067416 (Version 1)
Quarter: 2014Q2

REPORT INFORMATION
  Report Type: Spontaneous
  Country: CN (occurrence: None)
  Receive Date: 20140407
  Receipt Date: 20140407
  Transmission Date: 20141212
  Serious: Yes (Hospitalization, Other)
  Sender: FDA-Public Use
  Company Number: 2014P1002691

PATIENT
  Age: 4 Year
  Sex: Female

DRUGS (1)
  1. CEFTRIAXONE [Suspect]
     Indication: BRONCHITIS
     Route: 042

REACTIONS (7)
  - Asthenia [None]
  - Dysstasia [None]
  - Pallor [None]
  - Urticaria [None]
  - Abdominal pain [None]
  - Body temperature increased [None]
  - Haemolytic anaemia [None]
